FAERS Safety Report 5032516-1 (Version None)
Quarter: 2006Q2

REPORT INFORMATION
  Report Type: 
  Country: None (occurrence: None)
  Receive Date: 20060622
  Receipt Date: 20060612
  Transmission Date: 20061013
  Serious: Yes (Other)
  Sender: FDA-Public Use
  Company Number: CA-BRISTOL-MYERS SQUIBB COMPANY-13411541

PATIENT
  Age: 48 Year
  Sex: Male

DRUGS (9)
  1. ZERIT [Suspect]
     Indication: HIV INFECTION
     Dates: start: 19990101, end: 20051101
  2. REYATAZ [Suspect]
  3. LAMIVUDINE [Concomitant]
  4. MULTIPLE VITAMIN [Concomitant]
  5. ASPIRIN [Concomitant]
  6. ATENOLOL [Concomitant]
  7. NITROGLYCERIN SPRAY [Concomitant]
  8. VITAMINS [Concomitant]
  9. ECHINACEA [Concomitant]

REACTIONS (3)
  - ARTERIAL OCCLUSIVE DISEASE [None]
  - BLOOD CHOLESTEROL INCREASED [None]
  - MYOCARDIAL INFARCTION [None]
